FAERS Safety Report 8335220-7 (Version None)
Quarter: 2012Q2

REPORT INFORMATION
  Report Type: 
  Country: None (occurrence: None)
  Receive Date: 20120503
  Receipt Date: 20120427
  Transmission Date: 20120825
  Serious: Yes (Disabling)
  Sender: FDA-Public Use
  Company Number: CA-B.I. PHARMACEUTICALS,INC./RIDGEFIELD-2012-CN-00906CN

PATIENT
  Age: 71 Year
  Sex: Female
  Weight: 72.57 kg

DRUGS (3)
  1. METOPROLOL TARTRATE [Concomitant]
     Indication: ATRIAL FIBRILLATION
     Dosage: 1/2 TABLET, 1/2 AM 1/2 PM
  2. DILTIAZEM [Concomitant]
     Indication: ATRIAL FIBRILLATION
     Dosage: 120 MG
  3. PRADAXA [Suspect]
     Indication: ATRIAL FIBRILLATION
     Dosage: 220 MG
     Route: 048
     Dates: start: 20120302, end: 20120404

REACTIONS (10)
  - DIZZINESS [None]
  - PRURITUS [None]
  - NAUSEA [None]
  - VOMITING [None]
  - SCIATIC NERVE INJURY [None]
  - CHILLS [None]
  - CONTUSION [None]
  - RASH [None]
  - MUSCLE RUPTURE [None]
  - PAIN IN EXTREMITY [None]
